FAERS Safety Report 5117880-7 (Version None)
Quarter: 2006Q3

REPORT INFORMATION
  Report Type: 
  Country: None (occurrence: None)
  Receive Date: 20060926
  Receipt Date: 20060908
  Transmission Date: 20061208
  Serious: Yes (Other)
  Sender: FDA-Public Use
  Company Number: CA200609003112

PATIENT
  Sex: Female

DRUGS (9)
  1. HUMALOG [Suspect]
     Indication: DIABETES MELLITUS
     Dosage: AS NEEDED, SUBCUTANEOUS
     Route: 058
     Dates: start: 20060601
  2. HUMULIN N [Suspect]
  3. ASPIRIN 10GR TIMED DISINTEGRATION TAB [Concomitant]
  4. FUROSEMIDE [Concomitant]
  5. LORAZEPAM [Concomitant]
  6. METOPROLOL TARTRATE [Concomitant]
  7. PRAVASTATIN SODIUM [Concomitant]
  8. SALBUTAMOL [Concomitant]
  9. TYLENOL W/ CODEINE [Concomitant]

REACTIONS (5)
  - ANXIETY [None]
  - CARDIAC FAILURE CONGESTIVE [None]
  - CONDITION AGGRAVATED [None]
  - FLUID RETENTION [None]
  - HYPERHIDROSIS [None]
